FAERS Safety Report 24954682 (Version 1)
Quarter: 2025Q1

REPORT INFORMATION
  Report Type: Spontaneous
  Country: CN (occurrence: CN)
  Receive Date: 20250211
  Receipt Date: 20250211
  Transmission Date: 20250409
  Serious: Yes (Hospitalization)
  Sender: AUROBINDO
  Company Number: CN-AUROBINDO-AUR-APL-2025-008090

PATIENT
  Age: 21 Year
  Sex: Male

DRUGS (1)
  1. MIRTAZAPINE [Suspect]
     Active Substance: MIRTAZAPINE
     Indication: Symptomatic treatment
     Dosage: 15 MILLIGRAM, TWO TIMES A DAY
     Route: 048
     Dates: start: 20250103, end: 20250123

REACTIONS (1)
  - Sedation complication [Recovering/Resolving]

NARRATIVE: CASE EVENT DATE: 20250123
